FAERS Safety Report 20608999 (Version 1)
Quarter: 2022Q1

REPORT INFORMATION
  Report Type: Other
  Country: None (occurrence: MA)
  Receive Date: 20220317
  Receipt Date: 20220317
  Transmission Date: 20220423
  Serious: Yes (Other)
  Sender: FDA-Public Use
  Company Number: MA-B.Braun Medical Inc.-2126896

PATIENT
  Age: 35 Year
  Sex: Male

DRUGS (1)
  1. MANNITOL [Suspect]
     Active Substance: MANNITOL

REACTIONS (1)
  - Drug ineffective [Not Recovered/Not Resolved]
